FAERS Safety Report 20516538 (Version 1)
Quarter: 2022Q1

REPORT INFORMATION
  Report Type: Spontaneous
  Country: JP (occurrence: JP)
  Receive Date: 20220225
  Receipt Date: 20220225
  Transmission Date: 20220424
  Serious: Yes (Death, Other)
  Sender: FDA-Public Use
  Company Number: JP-SUN PHARMACEUTICAL INDUSTRIES LTD-2022RR-327539

PATIENT
  Age: 76 Year
  Sex: Male

DRUGS (10)
  1. GEMCITABINE [Suspect]
     Active Substance: GEMCITABINE
     Indication: Mesothelioma malignant
     Dosage: 2 CYCLES
     Route: 065
  2. PREDNISOLONE [Suspect]
     Active Substance: PREDNISOLONE
     Indication: Mesothelioma malignant
     Dosage: 20 MILLIGRAM, DAILY
     Route: 048
  3. PEMETREXED [Suspect]
     Active Substance: PEMETREXED
     Indication: Mesothelioma malignant
     Dosage: 3 CYCLES
     Route: 065
  4. PEMETREXED [Suspect]
     Active Substance: PEMETREXED
     Dosage: 3 CYCLES
     Route: 065
  5. PEMETREXED [Suspect]
     Active Substance: PEMETREXED
     Dosage: 27 CYCLES
     Route: 065
  6. CISPLATIN [Suspect]
     Active Substance: CISPLATIN
     Indication: Mesothelioma malignant
     Dosage: 3 CYCLES
     Route: 065
  7. CARBOPLATIN [Suspect]
     Active Substance: CARBOPLATIN
     Indication: Mesothelioma malignant
     Dosage: 3 CYCLES
     Route: 065
  8. METHYLPREDNISOLONE [Suspect]
     Active Substance: METHYLPREDNISOLONE
     Indication: Mesothelioma malignant
     Dosage: 20 MILLIGRAM, DAILY
     Route: 042
  9. METHYLPREDNISOLONE [Suspect]
     Active Substance: METHYLPREDNISOLONE
     Dosage: 50 MILLIGRAM, DAILY
     Route: 042
  10. NIVOLUMAB [Concomitant]
     Active Substance: NIVOLUMAB
     Indication: Mesothelioma malignant
     Dosage: 240 MG/BODY
     Route: 042

REACTIONS (4)
  - Metastasis [Fatal]
  - Disease recurrence [Unknown]
  - Therapeutic product effect incomplete [Unknown]
  - Drug resistance [Unknown]
